FAERS Safety Report 12796840 (Version 5)
Quarter: 2016Q4

REPORT INFORMATION
  Report Type: Spontaneous
  Country: IT (occurrence: IT)
  Receive Date: 20160930
  Receipt Date: 20161028
  Transmission Date: 20170207
  Serious: Yes (Congenital Anomaly)
  Sender: FDA-Public Use
  Company Number: IT-TEVA-695889ACC

PATIENT
  Age: 62 Year
  Sex: Female

DRUGS (9)
  1. METHOTREXATE. [Suspect]
     Active Substance: METHOTREXATE
     Indication: RHEUMATOID ARTHRITIS
     Route: 048
  2. PREDNISONE. [Suspect]
     Active Substance: PREDNISONE
     Indication: RHEUMATOID ARTHRITIS
     Dosage: 5 MILLIGRAM DAILY;
     Route: 048
  3. ABATACEPT [Suspect]
     Active Substance: ABATACEPT
     Indication: RHEUMATOID ARTHRITIS
     Route: 042
  4. PREDNISONE. [Suspect]
     Active Substance: PREDNISONE
     Dosage: 5 MCG/DIE
  5. ABATACEPT [Suspect]
     Active Substance: ABATACEPT
     Route: 042
     Dates: start: 201407
  6. IBUPROFENE [Suspect]
     Active Substance: IBUPROFEN
  7. METHOTREXATE. [Suspect]
     Active Substance: METHOTREXATE
  8. METHOTREXATE. [Suspect]
     Active Substance: METHOTREXATE
  9. IBUPROFENE [Suspect]
     Active Substance: IBUPROFEN
     Indication: RHEUMATOID ARTHRITIS
     Dosage: 600 MILLIGRAM DAILY;
     Route: 048

REACTIONS (7)
  - Chronic gastritis [Unknown]
  - Rhinitis [Unknown]
  - Vaginal infection [Unknown]
  - Gastritis erosive [Unknown]
  - Polypectomy [Unknown]
  - Pharyngitis [Unknown]
  - Polyp [Unknown]
